FAERS Safety Report 24680039 (Version 1)
Quarter: 2024Q4

REPORT INFORMATION
  Report Type: Spontaneous
  Country: IQ (occurrence: IQ)
  Receive Date: 20241129
  Receipt Date: 20241129
  Transmission Date: 20250114
  Serious: Yes (Other)
  Sender: ROCHE
  Company Number: IQ-ROCHE-10000142209

PATIENT
  Sex: Male

DRUGS (11)
  1. RITUXIMAB [Suspect]
     Active Substance: RITUXIMAB
     Indication: Mantle cell lymphoma
     Dosage: 1ST SYSTEMIC TREATMENT R-CHOP
     Route: 065
     Dates: start: 20230601, end: 20231001
  2. RITUXIMAB [Suspect]
     Active Substance: RITUXIMAB
     Dosage: 2ND SYSTEMIC TREATMENT BR
     Route: 065
     Dates: start: 20240101, end: 20240201
  3. RITUXIMAB [Suspect]
     Active Substance: RITUXIMAB
     Dosage: 4TH SYSTEMIC TREATMENT R-DHAP
     Route: 065
     Dates: start: 20240707, end: 20240825
  4. CYCLOPHOSPHAMIDE [Suspect]
     Active Substance: CYCLOPHOSPHAMIDE
     Indication: Mantle cell lymphoma
     Dosage: 1ST SYSTEMIC TREATMENT R-CHOP
     Route: 065
     Dates: start: 20230601, end: 20231001
  5. PREDNISONE [Suspect]
     Active Substance: PREDNISONE
     Indication: Mantle cell lymphoma
     Dosage: 1ST SYSTEMIC TREATMENT R-CHOP
     Route: 065
     Dates: start: 20230601, end: 20231001
  6. BENDAMUSTINE [Suspect]
     Active Substance: BENDAMUSTINE
     Indication: Mantle cell lymphoma
     Dosage: 2ND SYSTEMIC TREATMENT BR
     Route: 065
     Dates: start: 20240101, end: 20240201
  7. EPIRUBICIN [Suspect]
     Active Substance: EPIRUBICIN
     Indication: Mantle cell lymphoma
     Dosage: 1ST SYSTEMIC TREATMENT R-CHOP
     Route: 065
     Dates: start: 20230601, end: 20231001
  8. ONCOVIN [Suspect]
     Active Substance: VINCRISTINE SULFATE
     Indication: Mantle cell lymphoma
     Dosage: 1ST SYSTEMIC TREATMENT R-CHOP
     Route: 065
     Dates: start: 20230601, end: 20231001
  9. DEXAMETHASONE [Concomitant]
     Active Substance: DEXAMETHASONE
     Indication: Mantle cell lymphoma
     Dosage: 4TH SYSTEMIC TREATMENT R-DHAP
     Route: 065
     Dates: start: 20240707, end: 20240825
  10. CYTARABINE [Concomitant]
     Active Substance: CYTARABINE
     Indication: Mantle cell lymphoma
     Dosage: 4TH SYSTEMIC TREATMENT R-DHAP
     Route: 065
     Dates: start: 20240707, end: 20240825
  11. CISPLATIN [Concomitant]
     Active Substance: CISPLATIN
     Indication: Mantle cell lymphoma
     Dosage: 4TH SYSTEMIC TREATMENT R-DHAP
     Route: 065
     Dates: start: 20240707, end: 20240825

REACTIONS (1)
  - Disease progression [Unknown]
